FAERS Safety Report 16882753 (Version 1)
Quarter: 2019Q4

REPORT INFORMATION
  Report Type: Spontaneous
  Country: IT (occurrence: IT)
  Receive Date: 20191003
  Receipt Date: 20191003
  Transmission Date: 20200122
  Serious: Yes (Other)
  Sender: FDA-Public Use
  Company Number: IT-SUN PHARMACEUTICAL INDUSTRIES LTD-2019RR-222391

PATIENT
  Sex: Male

DRUGS (12)
  1. CLONAZEPAM. [Suspect]
     Active Substance: CLONAZEPAM
     Indication: BRADYKINESIA
     Dosage: UP TO 0.5 MG/DAY
     Route: 065
  2. LEVETIRACETAM. [Suspect]
     Active Substance: LEVETIRACETAM
     Indication: BRADYKINESIA
     Dosage: UP TO 1500 MG/DAY
     Route: 065
  3. SATIVEX [Suspect]
     Active Substance: NABIXIMOLS
     Indication: BRADYKINESIA
     Dosage: 3 PUFFS, DAILY
     Route: 065
  4. PROPRANOLOL [Suspect]
     Active Substance: PROPRANOLOL HYDROCHLORIDE
     Indication: BRADYKINESIA
     Dosage: UP TO 80 MG/DAY
     Route: 065
  5. TOPIRAMATE. [Suspect]
     Active Substance: TOPIRAMATE
     Indication: BRADYKINESIA
     Dosage: UP TO 225 MG/DAY
     Route: 065
  6. LEVODOPA [Suspect]
     Active Substance: LEVODOPA
     Indication: BRADYKINESIA
     Dosage: UP TO 300 MG/DAY
     Route: 065
  7. DIAZEPAM. [Suspect]
     Active Substance: DIAZEPAM
     Indication: BRADYKINESIA
     Dosage: UP TO 1 MG/DAY
     Route: 065
  8. PIRACETAM [Suspect]
     Active Substance: PIRACETAM
     Indication: BRADYKINESIA
     Dosage: UP TO 1200 MG/DAY
     Route: 065
  9. PRIMIDONE. [Suspect]
     Active Substance: PRIMIDONE
     Indication: BRADYKINESIA
     Dosage: UP TO 250 MG/DAY
     Route: 065
  10. MIRTAZAPINE. [Suspect]
     Active Substance: MIRTAZAPINE
     Indication: PRODUCT USED FOR UNKNOWN INDICATION
     Dosage: 30 MILLIGRAM, DAILY
     Route: 065
  11. NATALIZUMAB [Suspect]
     Active Substance: NATALIZUMAB
     Indication: RELAPSING-REMITTING MULTIPLE SCLEROSIS
     Dosage: UNK, MONTHLY
     Route: 065
  12. MARAVIROC [Suspect]
     Active Substance: MARAVIROC
     Indication: PRODUCT USED FOR UNKNOWN INDICATION
     Dosage: 600 MILLIGRAM, DAILY
     Route: 065

REACTIONS (3)
  - Progressive multifocal leukoencephalopathy [Recovering/Resolving]
  - Condition aggravated [Recovering/Resolving]
  - Treatment failure [Recovering/Resolving]
